FAERS Safety Report 23182234 (Version 1)
Quarter: 2023Q4

REPORT INFORMATION
  Report Type: Report from Study
  Country: US (occurrence: US)
  Receive Date: 20231114
  Receipt Date: 20231114
  Transmission Date: 20240110
  Serious: Yes (Other)
  Sender: FDA-Public Use
  Company Number: US-OTSUKA-2023_029441

PATIENT
  Age: 79 Year
  Sex: Male
  Weight: 94.07 kg

DRUGS (1)
  1. CEDAZURIDINE\DECITABINE [Suspect]
     Active Substance: CEDAZURIDINE\DECITABINE
     Indication: Myelodysplastic syndrome
     Dosage: 135 MG (35 MG DECITABINE + 100 MG CEDAZURIDINE), QD (DAYS 1-4) OF EACH 35-DAY CYCLE
     Route: 048
     Dates: start: 20231020

REACTIONS (2)
  - Transfusion [Unknown]
  - Inappropriate schedule of product administration [Unknown]

NARRATIVE: CASE EVENT DATE: 20231020
